FAERS Safety Report 25967899 (Version 2)
Quarter: 2025Q4

REPORT INFORMATION
  Report Type: Spontaneous
  Country: EU (occurrence: EU)
  Receive Date: 20251028
  Receipt Date: 20251128
  Transmission Date: 20260118
  Serious: Yes (Other)
  Sender: TEVA
  Company Number: EU-TEVA-VS-3386491

PATIENT
  Age: 50 Year
  Sex: Female

DRUGS (5)
  1. LETROZOLE [Suspect]
     Active Substance: LETROZOLE
     Indication: Inflammatory carcinoma of breast stage III
     Route: 065
     Dates: start: 202212, end: 2023
  2. ALPELISIB [Suspect]
     Active Substance: ALPELISIB
     Indication: Inflammatory carcinoma of breast stage III
     Route: 065
     Dates: start: 202403, end: 2024
  3. FULVESTRANT [Suspect]
     Active Substance: FULVESTRANT
     Indication: Inflammatory carcinoma of breast stage III
     Route: 065
     Dates: start: 202403, end: 2024
  4. ABEMACICLIB [Suspect]
     Active Substance: ABEMACICLIB
     Indication: Inflammatory carcinoma of breast stage III
     Route: 065
     Dates: start: 202212, end: 2023
  5. CAPECITABINE [Suspect]
     Active Substance: CAPECITABINE
     Indication: Inflammatory carcinoma of breast stage III
     Route: 065
     Dates: start: 202307, end: 2024

REACTIONS (2)
  - Drug eruption [Unknown]
  - Drug ineffective [Unknown]

NARRATIVE: CASE EVENT DATE: 20240501
